FAERS Safety Report 5946973-7 (Version None)
Quarter: 2008Q4

REPORT INFORMATION
  Report Type: 
  Country: None (occurrence: None)
  Receive Date: 20081110
  Receipt Date: 20081030
  Transmission Date: 20090506
  Serious: Yes (Hospitalization, Other)
  Sender: FDA-Public Use
  Company Number: US-AVENTIS-200615085US

PATIENT
  Sex: Male

DRUGS (5)
  1. KETEK [Suspect]
     Route: 048
     Dates: start: 20060510
  2. KETEK [Suspect]
     Indication: BRONCHITIS
     Route: 048
     Dates: start: 20060510
  3. KETEK [Suspect]
     Indication: RESPIRATORY DISORDER
     Route: 048
     Dates: start: 20060510
  4. LEVOXYL [Concomitant]
  5. LIPITOR [Concomitant]

REACTIONS (40)
  - ABDOMINAL PAIN [None]
  - ANAEMIA [None]
  - ANGIOEDEMA [None]
  - ASTHENIA [None]
  - BILIRUBIN CONJUGATED INCREASED [None]
  - BLOOD ALBUMIN DECREASED [None]
  - BLOOD BILIRUBIN INCREASED [None]
  - BLOOD BILIRUBIN UNCONJUGATED INCREASED [None]
  - BLOOD IRON DECREASED [None]
  - BLOOD POTASSIUM DECREASED [None]
  - CHOLELITHIASIS [None]
  - COUGH [None]
  - DERMATITIS [None]
  - DIZZINESS [None]
  - EOSINOPHILIA [None]
  - FATIGUE [None]
  - FLUSHING [None]
  - HAEMATOCRIT DECREASED [None]
  - HAEMOGLOBIN DECREASED [None]
  - HEPATIC ENZYME INCREASED [None]
  - HEPATIC STEATOSIS [None]
  - HEPATITIS CHOLESTATIC [None]
  - HEPATOTOXICITY [None]
  - IRON BINDING CAPACITY TOTAL DECREASED [None]
  - JAUNDICE [None]
  - LETHARGY [None]
  - NAUSEA [None]
  - OEDEMA PERIPHERAL [None]
  - PELVIC FLUID COLLECTION [None]
  - PLEURAL EFFUSION [None]
  - PRURITUS [None]
  - PYREXIA [None]
  - RASH [None]
  - RASH ERYTHEMATOUS [None]
  - RED BLOOD CELL COUNT DECREASED [None]
  - RED BLOOD CELL SEDIMENTATION RATE INCREASED [None]
  - SOMNOLENCE [None]
  - URTICARIA [None]
  - VASCULITIS [None]
  - VOMITING [None]
